FAERS Safety Report 7948277-X (Version None)
Quarter: 2011Q4

REPORT INFORMATION
  Report Type: 
  Country: None (occurrence: None)
  Receive Date: 20111130
  Receipt Date: 20111122
  Transmission Date: 20120403
  Serious: No
  Sender: FDA-Public Use
  Company Number: US-PFIZER INC-2011185547

PATIENT
  Sex: Female
  Weight: 49.887 kg

DRUGS (5)
  1. ADVAIR DISKUS 100/50 [Concomitant]
     Indication: ASTHMA
     Dosage: UNK
  2. VALPROIC ACID [Concomitant]
     Dosage: UNK
  3. GEODON [Suspect]
     Indication: DEVELOPMENTAL DELAY
     Dosage: 20 MG, SINGLE DOSE
     Dates: start: 20110801, end: 20110801
  4. GEODON [Suspect]
     Indication: BIPOLAR DISORDER
     Dosage: 40 MG, SINGLE DOSE
     Route: 048
     Dates: start: 20110801, end: 20110801
  5. DEPAKOTE [Concomitant]
     Indication: BIPOLAR DISORDER
     Dosage: 1500 MG DAILY
     Dates: start: 20060101

REACTIONS (3)
  - SOMNOLENCE [None]
  - DIZZINESS [None]
  - PAIN IN EXTREMITY [None]
